FAERS Safety Report 6645870-1 (Version None)
Quarter: 2010Q1

REPORT INFORMATION
  Report Type: 
  Country: None (occurrence: None)
  Receive Date: 20100323
  Receipt Date: 20100311
  Transmission Date: 20100710
  Serious: Yes (Other)
  Sender: FDA-Public Use
  Company Number: PHHY2010GB15659

PATIENT
  Sex: Male

DRUGS (3)
  1. CLOZARIL [Suspect]
     Indication: SCHIZOPHRENIA
     Dosage: UNK
     Dates: start: 20081217
  2. HYOSCINE [Concomitant]
     Indication: SALIVARY HYPERSECRETION
  3. ARIPIPRAZOLE [Concomitant]

REACTIONS (2)
  - HYPERTENSION [None]
  - VENTRICULAR DYSFUNCTION [None]
